FAERS Safety Report 14681915 (Version 5)
Quarter: 2018Q3

REPORT INFORMATION
  Report Type: Spontaneous
  Country: US (occurrence: US)
  Receive Date: 20180326
  Receipt Date: 20180809
  Transmission Date: 20181010
  Serious: Yes (Hospitalization)
  Sender: FDA-Public Use
  Company Number: US-ACTELION-A-US2018-169559

PATIENT
  Age: 66 Year
  Sex: Female

DRUGS (12)
  1. OPSUMIT [Suspect]
     Active Substance: MACITENTAN
     Indication: PULMONARY ARTERIAL HYPERTENSION
     Dosage: 10 MG, QD
     Route: 048
     Dates: start: 20180306
  2. PLAVIX [Concomitant]
     Active Substance: CLOPIDOGREL BISULFATE
  3. UPTRAVI [Suspect]
     Active Substance: SELEXIPAG
     Dosage: 1600 UNK, UNK
     Route: 048
  4. ADEMPAS [Concomitant]
     Active Substance: RIOCIGUAT
  5. NIFEDIPINE. [Concomitant]
     Active Substance: NIFEDIPINE
  6. ZOCOR [Concomitant]
     Active Substance: SIMVASTATIN
  7. UPTRAVI [Suspect]
     Active Substance: SELEXIPAG
     Dosage: 600 MCG, BID
     Route: 048
     Dates: start: 20180303
  8. ASPIRIN. [Concomitant]
     Active Substance: ASPIRIN
  9. DOCUSATE [Concomitant]
     Active Substance: DOCUSATE
  10. UPTRAVI [Suspect]
     Active Substance: SELEXIPAG
     Indication: PULMONARY ARTERIAL HYPERTENSION
     Dosage: 1400 MCG, BID
     Route: 048
     Dates: start: 20180303
  11. TRAMADOL. [Concomitant]
     Active Substance: TRAMADOL
  12. TOPROL XL [Concomitant]
     Active Substance: METOPROLOL SUCCINATE

REACTIONS (13)
  - Chills [Unknown]
  - Abdominal pain [Unknown]
  - Pulmonary arterial hypertension [Unknown]
  - Drug dose omission [Recovered/Resolved]
  - Diarrhoea [Unknown]
  - Pyrexia [Unknown]
  - Vomiting [Recovered/Resolved]
  - Influenza [Unknown]
  - Productive cough [Unknown]
  - Pneumonia [Unknown]
  - Dyspnoea [Unknown]
  - Swelling face [Unknown]
  - Cardiac failure [Unknown]

NARRATIVE: CASE EVENT DATE: 20180420
